FAERS Safety Report 12853251 (Version 1)
Quarter: 2016Q4

REPORT INFORMATION
  Report Type: Spontaneous
  Country: US (occurrence: US)
  Receive Date: 20161014
  Receipt Date: 20161014
  Transmission Date: 20170207
  Serious: Yes (Hospitalization)
  Sender: FDA-Public Use
  Company Number: None

PATIENT
  Age: 65 Year
  Sex: Female
  Weight: 90.53 kg

DRUGS (19)
  1. EVEROLIMUS [Suspect]
     Active Substance: EVEROLIMUS
  2. ZYRTEC [Concomitant]
     Active Substance: CETIRIZINE HYDROCHLORIDE
  3. AZITHROMYCIN ANHYDROUS. [Concomitant]
     Active Substance: AZITHROMYCIN ANHYDROUS
  4. VITAMIN D3 [Concomitant]
     Active Substance: CHOLECALCIFEROL
  5. VITAMIN B12 [Concomitant]
     Active Substance: CYANOCOBALAMIN
  6. CARBOPLATIN. [Suspect]
     Active Substance: CARBOPLATIN
  7. BENADRYL [Concomitant]
     Active Substance: DIPHENHYDRAMINE HYDROCHLORIDE
  8. AMBIEN [Concomitant]
     Active Substance: ZOLPIDEM TARTRATE
  9. NEULASTA [Concomitant]
     Active Substance: PEGFILGRASTIM
  10. ZOFRAN [Concomitant]
     Active Substance: ONDANSETRON HYDROCHLORIDE
  11. BENZONATE [Concomitant]
     Active Substance: BENZONATATE
  12. HYDROCHLORTHIAZIDE [Concomitant]
     Active Substance: HYDROCHLOROTHIAZIDE
  13. CYMBALTA [Concomitant]
     Active Substance: DULOXETINE HYDROCHLORIDE
  14. MOTRIN [Concomitant]
     Active Substance: IBUPROFEN
  15. LACHYDRIN [Concomitant]
  16. XANXAX [Concomitant]
  17. COMPAZINE [Concomitant]
     Active Substance: PROCHLORPERAZINE MALEATE
  18. SIMVASTATIN. [Concomitant]
     Active Substance: SIMVASTATIN
  19. TRAMADOL. [Concomitant]
     Active Substance: TRAMADOL

REACTIONS (4)
  - Chest discomfort [None]
  - Productive cough [None]
  - Dyspnoea exertional [None]
  - Chest pain [None]

NARRATIVE: CASE EVENT DATE: 20160614
